FAERS Safety Report 4484175-4 (Version None)
Quarter: 2004Q4

REPORT INFORMATION
  Report Type: 
  Country: None (occurrence: None)
  Receive Date: 20041025
  Receipt Date: 20041018
  Transmission Date: 20050328
  Serious: Yes (Life-Threatening, Disabling)
  Sender: FDA-Public Use
  Company Number: US-MERCK-0410USA02704

PATIENT
  Age: 49 Year
  Sex: Female

DRUGS (9)
  1. VIOXX [Suspect]
     Indication: ARTHRITIS
     Route: 048
     Dates: start: 20010101
  2. VIOXX [Suspect]
     Route: 048
     Dates: end: 20040901
  3. MOBIC [Concomitant]
     Route: 065
  4. FOLIC ACID [Concomitant]
     Route: 065
  5. PROZAC [Concomitant]
     Route: 065
  6. METHOTREXATE [Concomitant]
     Route: 065
  7. CLONAZEPAM [Concomitant]
     Route: 065
  8. PROVIGIL [Concomitant]
     Route: 065
  9. HYDROCODONE HYDROCHLORIDE [Concomitant]
     Route: 065

REACTIONS (1)
  - CHEST PAIN [None]
